FAERS Safety Report 7604576-2 (Version None)
Quarter: 2011Q3

REPORT INFORMATION
  Report Type: 
  Country: None (occurrence: None)
  Receive Date: 20110712
  Receipt Date: 20110707
  Transmission Date: 20111222
  Serious: Yes (Disabling, Other)
  Sender: FDA-Public Use
  Company Number: US-PFIZER INC-2011069791

PATIENT
  Sex: Male

DRUGS (2)
  1. CHANTIX [Suspect]
     Indication: SMOKING CESSATION THERAPY
     Dosage: STARTER PACK AND 1.0 MG CONTINUING PACK
     Dates: start: 20071001, end: 20071231
  2. CHANTIX [Suspect]
     Dosage: STARTER PACK AND 1.0 MG CONTINUING PACK
     Dates: start: 20080701, end: 20081130

REACTIONS (10)
  - LOSS OF CONSCIOUSNESS [None]
  - MENTAL DISORDER [None]
  - SUICIDAL IDEATION [None]
  - PSYCHOTIC DISORDER [None]
  - DRUG ABUSE [None]
  - ANXIETY [None]
  - DEPRESSION [None]
  - AGGRESSION [None]
  - COGNITIVE DISORDER [None]
  - ALCOHOL ABUSE [None]
